FAERS Safety Report 21046034 (Version 4)
Quarter: 2022Q4

REPORT INFORMATION
  Report Type: Report from Study
  Country: US (occurrence: US)
  Receive Date: 20220706
  Receipt Date: 20221206
  Transmission Date: 20230113
  Serious: Yes (Hospitalization, Other)
  Sender: FDA-Public Use
  Company Number: US-BRISTOL-MYERS SQUIBB COMPANY-2022-062841

PATIENT
  Age: 75 Year
  Sex: Male
  Weight: 113.4 kg

DRUGS (28)
  1. REVLIMID [Suspect]
     Active Substance: LENALIDOMIDE
     Indication: Mantle cell lymphoma
     Dosage: FOR 21 DAYS 7 DAY OFF
     Route: 048
     Dates: start: 20210818
  2. REVLIMID [Suspect]
     Active Substance: LENALIDOMIDE
     Dosage: ONCE DAILY FOR 21 DAYS, THEN 7 DAYS OFF
     Route: 048
     Dates: start: 20210818
  3. REVLIMID [Suspect]
     Active Substance: LENALIDOMIDE
     Dosage: ONCE A DAY, 21 OF 28 DAYS
     Route: 048
  4. REVLIMID [Suspect]
     Active Substance: LENALIDOMIDE
     Dosage: ONCE A DAY, 21 OF 28 DAYS
     Route: 048
     Dates: start: 20210818
  5. VITAMIN D3 [Concomitant]
     Active Substance: CHOLECALCIFEROL
     Dosage: 25 MCG CAPSULE,
  6. VITAMIN D3 [Concomitant]
     Active Substance: CHOLECALCIFEROL
     Dosage: 10 MCG CAPSULE
  7. LUPRON [Concomitant]
     Active Substance: LEUPROLIDE ACETATE
  8. ACYCLOVIR [Concomitant]
     Active Substance: ACYCLOVIR
  9. XARELTO [Concomitant]
     Active Substance: RIVAROXABAN
  10. LISINOPRIL [Concomitant]
     Active Substance: LISINOPRIL
  11. LISINOPRIL [Concomitant]
     Active Substance: LISINOPRIL
  12. VITAMIN B12 [Concomitant]
     Active Substance: CYANOCOBALAMIN
     Dosage: 1000 MCG/ML DROPS
  13. VITAMIN B12 [Concomitant]
     Active Substance: CYANOCOBALAMIN
     Dosage: 2500 MCG TABLET
  14. IRON [Concomitant]
     Active Substance: IRON
  15. RITUXAN [Concomitant]
     Active Substance: RITUXIMAB
     Dosage: 10 MG/ML VIAL
  16. ALLOPURINOL [Concomitant]
     Active Substance: ALLOPURINOL
  17. DOXYCYCLINE HYCLATE [Concomitant]
     Active Substance: DOXYCYCLINE HYCLATE
  18. LUPRON DEPOT-PED [Concomitant]
     Active Substance: LEUPROLIDE ACETATE
     Dosage: KIT
  19. IRON [Concomitant]
     Active Substance: IRON
     Dosage: 159(49)MG TABLET ER
  20. DOXAZOSIN MESYLATE [Concomitant]
     Active Substance: DOXAZOSIN MESYLATE
  21. BACTRIM [Concomitant]
     Active Substance: SULFAMETHOXAZOLE\TRIMETHOPRIM
     Dosage: 400MG-80 MG
  22. BENADRYL [Concomitant]
     Active Substance: DIPHENHYDRAMINE HYDROCHLORIDE
  23. LEVOTHYROXINE [Concomitant]
     Active Substance: LEVOTHYROXINE
     Dosage: 100 MCG CAPSULE
  24. LEVOTHYROXINE [Concomitant]
     Active Substance: LEVOTHYROXINE
     Dosage: 112 MCG CAPSULE
  25. METOPROLOL SUCCINATE [Concomitant]
     Active Substance: METOPROLOL SUCCINATE
  26. XARELTO [Concomitant]
     Active Substance: RIVAROXABAN
  27. LUPRON DEPOT [Concomitant]
     Active Substance: LEUPROLIDE ACETATE
     Dosage: SYRINGE-KIT
  28. ACYCLOVIR [Concomitant]
     Active Substance: ACYCLOVIR

REACTIONS (9)
  - Atrial fibrillation [Recovered/Resolved]
  - Thyroid disorder [Unknown]
  - Loss of consciousness [Unknown]
  - Aphonia [Unknown]
  - Syncope [Recovered/Resolved]
  - Haemoglobin decreased [Unknown]
  - Red blood cell count decreased [Unknown]
  - White blood cell count decreased [Unknown]
  - Dyspnoea [Unknown]
